FAERS Safety Report 6448454-3 (Version None)
Quarter: 2009Q4

REPORT INFORMATION
  Report Type: 
  Country: None (occurrence: None)
  Receive Date: 20091119
  Receipt Date: 20091119
  Transmission Date: 20100525
  Serious: Yes (Hospitalization)
  Sender: FDA-Public Use
  Company Number: None

PATIENT
  Age: 80 Year
  Sex: Female
  Weight: 68.8 kg

DRUGS (8)
  1. CYTOXAN [Suspect]
     Indication: B-CELL LYMPHOMA
     Dosage: 750 MG/M2, ONCE, IV
     Route: 042
     Dates: start: 20081017
  2. ADRIAMYCIN (PART OF R-CHOP + LEUKINE REGIMEN) [Suspect]
     Indication: B-CELL LYMPHOMA
     Dosage: 50 MG/M2, ONCE, IV
     Route: 042
     Dates: start: 20081017
  3. COLACE [Concomitant]
  4. TYLENOL (CAPLET) [Concomitant]
  5. ANZEMET [Concomitant]
  6. BENADRYL [Concomitant]
  7. DULCOLAX [Concomitant]
  8. PRILOSEC [Concomitant]

REACTIONS (4)
  - FEBRILE NEUTROPENIA [None]
  - MUCOSAL INFLAMMATION [None]
  - ORAL CANDIDIASIS [None]
  - PERIRECTAL ABSCESS [None]
